FAERS Safety Report 4351263-2 (Version None)
Quarter: 2004Q2

REPORT INFORMATION
  Report Type: 
  Country: None (occurrence: None)
  Receive Date: 20040430
  Receipt Date: 20040430
  Transmission Date: 20050107
  Serious: No
  Sender: FDA-Public Use
  Company Number: None

PATIENT
  Age: 51 Year
  Sex: Male
  Weight: 80 kg

DRUGS (1)
  1. RUTUXIMAB [Suspect]
     Indication: LYMPHOMA
     Dosage: 800 MG IV IN 250 ML NS
     Route: 042
     Dates: start: 20040110

REACTIONS (6)
  - ABDOMINAL PAIN [None]
  - CHEST DISCOMFORT [None]
  - MUSCLE CRAMP [None]
  - NAUSEA [None]
  - OXYGEN SATURATION DECREASED [None]
  - WHEEZING [None]
